FAERS Safety Report 22658180 (Version 1)
Quarter: 2023Q2

REPORT INFORMATION
  Report Type: Spontaneous
  Country: IN (occurrence: IN)
  Receive Date: 20230630
  Receipt Date: 20230630
  Transmission Date: 20230722
  Serious: Yes (Hospitalization, Other)
  Sender: FDA-Public Use
  Company Number: IN-STRIDES ARCOLAB LIMITED-2023SP010316

PATIENT
  Age: 21 Year
  Sex: Female

DRUGS (2)
  1. ETOPOSIDE [Suspect]
     Active Substance: ETOPOSIDE
     Indication: Alveolar rhabdomyosarcoma
     Dosage: UNK, CYCLICAL (GIVEN OVER 5 DAYS; IE)
     Route: 065
  2. IFOSFAMIDE [Suspect]
     Active Substance: IFOSFAMIDE
     Indication: Alveolar rhabdomyosarcoma
     Dosage: UNK, CYCLICAL (GIVEN OVER 5 DAYS; IE)
     Route: 065

REACTIONS (3)
  - Syncope [Unknown]
  - Alopecia [Unknown]
  - Off label use [Unknown]
